FAERS Safety Report 22159395 (Version 2)
Quarter: 2023Q2

REPORT INFORMATION
  Report Type: Other
  Country: US (occurrence: None)
  Receive Date: 20230331
  Receipt Date: 20230404
  Transmission Date: 20230721
  Serious: Yes (Death)
  Sender: FDA-Public Use
  Company Number: US-ROCHE-3320747

PATIENT
  Age: 67 Year
  Sex: Female

DRUGS (2)
  1. KADCYLA [Suspect]
     Active Substance: ADO-TRASTUZUMAB EMTANSINE
     Indication: Ovarian cancer
     Dosage: INFUSE 200MG INTRAVENOUSLY EVERY 21 DAY(S)
     Route: 042
  2. KADCYLA [Suspect]
     Active Substance: ADO-TRASTUZUMAB EMTANSINE
     Indication: Ovarian germ cell cancer

REACTIONS (2)
  - Death [Fatal]
  - Off label use [Unknown]
